FAERS Safety Report 8822793 (Version 2)
Quarter: 2012Q4

REPORT INFORMATION
  Report Type: 
  Country: JP (occurrence: JP)
  Receive Date: 20121003
  Receipt Date: 20121204
  Transmission Date: 20130627
  Serious: Yes (Hospitalization)
  Sender: FDA-Public Use
  Company Number: JP-009507513-2012SP026223

PATIENT
  Age: 64 Year
  Sex: Male
  Weight: 72 kg

DRUGS (21)
  1. PEGINTRON [Suspect]
     Indication: CHRONIC HEPATITIS C
     Dosage: 1.5 ?g/kg, QW
     Route: 058
     Dates: start: 20120309, end: 20120323
  2. PEGINTRON [Suspect]
     Dosage: 1.2 ?g/kg, QW
     Route: 058
     Dates: start: 20120329, end: 20120711
  3. PEGINTRON [Suspect]
     Dosage: 1.1 Microgram per kilogram, qw
     Route: 058
     Dates: start: 20120712, end: 20120815
  4. PEGINTRON [Suspect]
     Dosage: 0.83 Microgram per kilogram, qw
     Route: 058
     Dates: start: 20120816, end: 20120823
  5. REBETOL [Suspect]
     Indication: CHRONIC HEPATITIS C
     Dosage: 800 mg, QD
     Route: 048
     Dates: start: 20120309, end: 20120322
  6. REBETOL [Suspect]
     Dosage: 400 mg, QD
     Route: 048
     Dates: start: 20120323, end: 20120328
  7. REBETOL [Suspect]
     Dosage: 200 mg, QD
     Route: 048
     Dates: start: 20120329, end: 20120613
  8. REBETOL [Suspect]
     Dosage: 400 mg, qd
     Route: 048
     Dates: start: 20120614, end: 20120829
  9. TELAVIC [Suspect]
     Indication: CHRONIC HEPATITIS C
     Dosage: 2250 mg, QD
     Route: 048
     Dates: start: 20120309, end: 20120328
  10. TELAVIC [Suspect]
     Dosage: 1500 mg, QD
     Route: 048
     Dates: start: 20120329
  11. LOXONIN [Concomitant]
     Indication: PROPHYLAXIS
     Dosage: 60 mg, QD
     Route: 048
     Dates: start: 20120307
  12. LOXONIN [Concomitant]
     Dosage: as needed 60mg/day
     Route: 048
  13. AMOBAN [Concomitant]
     Indication: PROPHYLAXIS
     Dosage: 7.5 mg, QD
     Route: 048
     Dates: start: 20120307
  14. AMOBAN [Concomitant]
     Dosage: as needed 7.5mg/day
     Route: 048
  15. FEBURIC [Concomitant]
     Indication: PROPHYLAXIS
     Dosage: 20 mg, QD
     Route: 048
     Dates: start: 20120309, end: 20120628
  16. NAUZELIN [Concomitant]
     Indication: PROPHYLAXIS
     Dosage: FORMULATION: POR
     Route: 048
     Dates: start: 20120313
  17. DOGMATYL [Concomitant]
     Indication: PROPHYLAXIS
     Dosage: 100 mg, QD
     Route: 048
     Dates: start: 20120315
  18. DOGMATYL [Concomitant]
     Dosage: 150mg,qd
     Route: 048
  19. EPADEL S [Concomitant]
     Indication: DYSLIPIDAEMIA
     Dosage: 1800mg,qd. por
     Route: 048
     Dates: start: 20120309
  20. ATELEC [Concomitant]
     Indication: HYPERTENSION
     Dosage: 10 mg, QD
     Route: 048
     Dates: start: 20120312
  21. TAKEPRON [Concomitant]
     Indication: PROPHYLAXIS
     Dosage: 15 mg, qd
     Route: 048
     Dates: start: 20120502, end: 20120513

REACTIONS (1)
  - Malaise [Recovering/Resolving]
